FAERS Safety Report 7109287-8 (Version None)
Quarter: 2010Q4

REPORT INFORMATION
  Report Type: 
  Country: None (occurrence: None)
  Receive Date: 20101117
  Receipt Date: 20101018
  Transmission Date: 20110411
  Serious: Yes (Hospitalization)
  Sender: FDA-Public Use
  Company Number: FR-AMGEN-FRASP2010000158

PATIENT

DRUGS (3)
  1. ENBREL [Suspect]
     Indication: JUVENILE ARTHRITIS
     Route: 058
     Dates: start: 20041126, end: 20050301
  2. ENBREL [Suspect]
     Route: 058
  3. PLAQUENIL [Concomitant]
     Indication: JUVENILE ARTHRITIS
     Route: 048
     Dates: start: 20021115

REACTIONS (2)
  - CONDITION AGGRAVATED [None]
  - PULMONARY FIBROSIS [None]
